FAERS Safety Report 8309130-5 (Version None)
Quarter: 2012Q2

REPORT INFORMATION
  Report Type: 
  Country: None (occurrence: None)
  Receive Date: 20120424
  Receipt Date: 20120417
  Transmission Date: 20120825
  Serious: Yes (Hospitalization)
  Sender: FDA-Public Use
  Company Number: PHHO2011FR06586

PATIENT
  Sex: Male
  Weight: 81 kg

DRUGS (16)
  1. CLONAZEPAM [Concomitant]
     Dosage: 10 DRP, QD
     Route: 048
     Dates: start: 20110318
  2. NEORAL [Suspect]
     Indication: RENAL TRANSPLANT
     Dosage: 500 MG, QD
     Route: 048
     Dates: start: 20110318
  3. BACTRIM [Concomitant]
     Dosage: UNK
     Route: 048
     Dates: start: 20110322
  4. HEPARIN [Suspect]
     Dosage: UNK
     Route: 042
     Dates: start: 20110321, end: 20110326
  5. PREVISCAN [Suspect]
     Dosage: 20 MG, QD
     Route: 048
     Dates: start: 20110325
  6. ACUPAN [Concomitant]
     Dosage: 3 AMPOULES PER DAY
     Route: 042
     Dates: start: 20110318, end: 20110323
  7. LASIX [Concomitant]
     Dosage: 500 MG, QD
     Route: 048
     Dates: start: 20110317
  8. CALCIDIA [Concomitant]
     Dosage: 3 G, QD
     Route: 048
     Dates: start: 20110325
  9. BENERVA [Concomitant]
     Dosage: 1000 MG, QD
     Route: 048
     Dates: start: 20110321, end: 20110323
  10. ACETAMINOPHEN [Concomitant]
     Dosage: 4 G, QD
     Route: 048
     Dates: start: 20110319, end: 20110323
  11. MYCOPHENOLATE MOFETIL (CELLCEPT) [Concomitant]
     Dosage: 3 G, QD
     Route: 048
     Dates: start: 20110327
  12. ESOMEPRAZOLE MAGNESIUM [Concomitant]
     Dosage: 20 MG, QD
     Route: 048
     Dates: start: 20110317
  13. PREDNISONE TAB [Concomitant]
     Dosage: 20 MG, QD
     Route: 048
     Dates: start: 20110318
  14. BECILAN [Concomitant]
     Dosage: 500 MG, QD
     Route: 048
     Dates: start: 20110321, end: 20110323
  15. DITROPAN [Concomitant]
     Dosage: 7.5 MG, QD
     Route: 048
     Dates: start: 20110320, end: 20110323
  16. NOVORAPID [Concomitant]
     Dosage: UNK
     Route: 058
     Dates: start: 20110319, end: 20110321

REACTIONS (3)
  - SHOCK HAEMORRHAGIC [None]
  - PULMONARY EMBOLISM [None]
  - PERIRENAL HAEMATOMA [None]
